FAERS Safety Report 8472686-6 (Version None)
Quarter: 2012Q2

REPORT INFORMATION
  Report Type: 
  Country: None (occurrence: None)
  Receive Date: 20120627
  Receipt Date: 20120619
  Transmission Date: 20120825
  Serious: Yes (Death)
  Sender: FDA-Public Use
  Company Number: JP-CELGENEUS-087-50794-12063523

PATIENT
  Sex: Female

DRUGS (1)
  1. VIDAZA [Suspect]
     Dosage: 100 MILLIGRAM
     Route: 041
     Dates: start: 20120419

REACTIONS (1)
  - NEUTROPHIL COUNT DECREASED [None]
